FAERS Safety Report 14911569 (Version 1)
Quarter: 2018Q2

REPORT INFORMATION
  Report Type: Spontaneous
  Country: CA (occurrence: CA)
  Receive Date: 20180518
  Receipt Date: 20180518
  Transmission Date: 20180711
  Serious: Yes (Disabling)
  Sender: FDA-Public Use
  Company Number: CA-TEVA-2018-CA-893652

PATIENT
  Age: 70 Year
  Sex: Female
  Weight: 62.2 kg

DRUGS (9)
  1. VITAMIN D [Concomitant]
     Active Substance: CHOLECALCIFEROL
  2. ZOLEDRONIC ACID [Suspect]
     Active Substance: ZOLEDRONIC ACID
     Indication: OSTEOPOROSIS
     Dosage: FREQUENCY: ONCE
     Route: 042
  3. LOSEC [Concomitant]
     Active Substance: OMEPRAZOLE
  4. VITAMIN B12 [Concomitant]
     Active Substance: CYANOCOBALAMIN
  5. VITAMIN B6 [Concomitant]
     Active Substance: PYRIDOXINE HYDROCHLORIDE
  6. FOLIC ACID. [Concomitant]
     Active Substance: FOLIC ACID
  7. CALCIUM [Concomitant]
     Active Substance: CALCIUM
  8. PLENDIL [Concomitant]
     Active Substance: FELODIPINE
  9. ALTACE [Concomitant]
     Active Substance: RAMIPRIL

REACTIONS (3)
  - Peripheral swelling [Not Recovered/Not Resolved]
  - Juvenile idiopathic arthritis [Not Recovered/Not Resolved]
  - Swelling [Not Recovered/Not Resolved]
